FAERS Safety Report 5955416-9 (Version None)
Quarter: 2008Q4

REPORT INFORMATION
  Report Type: 
  Country: None (occurrence: None)
  Receive Date: 20081117
  Receipt Date: 20081110
  Transmission Date: 20090506
  Serious: Yes (Death, Hospitalization)
  Sender: FDA-Public Use
  Company Number: US-ABBOTT-08P-163-0485659-00

PATIENT
  Sex: Male
  Weight: 126.21 kg

DRUGS (10)
  1. HUMIRA [Suspect]
     Indication: RHEUMATOID ARTHRITIS
     Route: 058
     Dates: start: 20080801
  2. HUMIRA [Suspect]
     Indication: PSORIATIC ARTHROPATHY
  3. METHOTREXATE [Concomitant]
     Indication: PSORIATIC ARTHROPATHY
  4. HYDROXYCHLOROQUINE SULFATE [Concomitant]
     Indication: PSORIATIC ARTHROPATHY
  5. METFORMIN HCL [Concomitant]
     Indication: DIABETES MELLITUS
  6. ATORVASTATIN CALCIUM [Concomitant]
     Indication: DRUG USE FOR UNKNOWN INDICATION
  7. ALLOPURINOL [Concomitant]
     Indication: GOUT
  8. INSULIN [Concomitant]
     Indication: DIABETES MELLITUS
  9. BUMETADINE [Concomitant]
     Indication: OEDEMA
  10. QUINAPRIL [Concomitant]
     Indication: DRUG USE FOR UNKNOWN INDICATION

REACTIONS (1)
  - DYSPNOEA [None]
